FAERS Safety Report 6812994-5 (Version None)
Quarter: 2010Q3

REPORT INFORMATION
  Report Type: 
  Country: None (occurrence: None)
  Receive Date: 20100701
  Receipt Date: 20100624
  Transmission Date: 20110219
  Serious: Yes (Other)
  Sender: FDA-Public Use
  Company Number: US-PFIZER INC-2010079829

PATIENT
  Sex: Female
  Weight: 71.2 kg

DRUGS (1)
  1. ESTRING [Suspect]
     Dosage: UNK
     Dates: start: 20100623, end: 20100624

REACTIONS (5)
  - IRRITABILITY [None]
  - MUSCLE SPASMS [None]
  - NAUSEA [None]
  - PAIN [None]
  - TENSION [None]
